FAERS Safety Report 14516517 (Version 1)
Quarter: 2018Q1

REPORT INFORMATION
  Report Type: Spontaneous
  Country: DE (occurrence: DE)
  Receive Date: 20180212
  Receipt Date: 20180212
  Transmission Date: 20180509
  Serious: Yes (Other)
  Sender: FDA-Public Use
  Company Number: DE-DEXPHARM-20180084

PATIENT
  Age: 16 Year
  Sex: Female
  Weight: 58 kg

DRUGS (5)
  1. LAMOTRIGINE. [Interacting]
     Active Substance: LAMOTRIGINE
     Route: 048
     Dates: start: 201701, end: 201705
  2. LEVETIRACETAM. [Interacting]
     Active Substance: LEVETIRACETAM
  3. VALPROATE [Suspect]
     Active Substance: VALPROIC ACID
     Dates: start: 201701, end: 201705
  4. LAMOTRIGINE. [Interacting]
     Active Substance: LAMOTRIGINE
  5. ORFIRIL LONG [Interacting]
     Active Substance: VALPROIC ACID
     Route: 048

REACTIONS (5)
  - Drug interaction [Recovered/Resolved]
  - Alopecia [Recovered/Resolved]
  - Thrombocytopenia [Recovered/Resolved]
  - Fatigue [Recovered/Resolved]
  - Decreased appetite [Recovered/Resolved]

NARRATIVE: CASE EVENT DATE: 201701
